FAERS Safety Report 7778315-9 (Version None)
Quarter: 2011Q3

REPORT INFORMATION
  Report Type: 
  Country: None (occurrence: None)
  Receive Date: 20110926
  Receipt Date: 20110912
  Transmission Date: 20111222
  Serious: Yes (Death, Other)
  Sender: FDA-Public Use
  Company Number: US-BAYER-201038887NA

PATIENT
  Sex: Female

DRUGS (20)
  1. ZAROXOLYN [Concomitant]
     Indication: RENAL FAILURE ACUTE
     Dosage: UNK
     Dates: start: 20040501, end: 20040901
  2. TRASYLOL [Suspect]
     Indication: AORTIC VALVE REPLACEMENT
  3. ALDACTONE [Concomitant]
     Indication: RENAL FAILURE ACUTE
     Dosage: UNK
     Dates: start: 20040501, end: 20040901
  4. DOPAMINE HCL [Concomitant]
     Indication: RENAL FAILURE ACUTE
     Dosage: UNK
     Dates: start: 20040601, end: 20040701
  5. METHYLPREDNISOLONE [Concomitant]
     Dosage: 2 HOURS PRIOR TO CT ANGIOGRAM
  6. LEXAPRO [Concomitant]
  7. LEVOXYL [Concomitant]
     Dosage: 0.112 MG, QD
  8. LANOXIN [Concomitant]
     Dosage: 0.25 MG, QD
  9. BUMEX [Concomitant]
     Indication: RENAL FAILURE ACUTE
     Dosage: UNK
     Dates: start: 20040501, end: 20040901
  10. TRASYLOL [Suspect]
     Indication: STERNOTOMY
     Dosage: UNK
     Dates: start: 20040430
  11. TRASYLOL [Suspect]
     Indication: MITRAL VALVE REPLACEMENT
  12. LASIX [Concomitant]
     Dosage: UNK
  13. VANCOMYCIN [Concomitant]
  14. ACETYLSALICYLIC ACID SRT [Concomitant]
     Dosage: 81 MG, QD
  15. AMIODARONE HCL [Concomitant]
     Dosage: 400 MG, TID
     Route: 048
     Dates: start: 20110428
  16. METHYLPREDNISOLONE [Concomitant]
     Indication: ANGIOGRAM
     Dosage: 32 MG, 12 HOURS
     Route: 048
     Dates: start: 20110428
  17. LEVOPHED [Concomitant]
  18. LASIX [Concomitant]
     Indication: RENAL FAILURE ACUTE
     Dosage: 40 MG, QD
     Dates: start: 20040501, end: 20040901
  19. GENTAMYCIN SULFATE [Concomitant]
     Dosage: UNK
     Dates: start: 20040430, end: 20040510
  20. IMIPENEM [Concomitant]

REACTIONS (14)
  - MULTI-ORGAN FAILURE [None]
  - INJURY [None]
  - ANXIETY [None]
  - RENAL FAILURE [None]
  - FEAR OF DEATH [None]
  - EMOTIONAL DISTRESS [None]
  - NERVOUSNESS [None]
  - DISABILITY [None]
  - PAIN [None]
  - DEATH [None]
  - RENAL INJURY [None]
  - UNEVALUABLE EVENT [None]
  - DEPRESSION [None]
  - ANHEDONIA [None]
